FAERS Safety Report 7288991-5 (Version None)
Quarter: 2011Q1

REPORT INFORMATION
  Report Type: 
  Country: None (occurrence: None)
  Receive Date: 20110211
  Receipt Date: 20101229
  Transmission Date: 20110831
  Serious: Yes (Other)
  Sender: FDA-Public Use
  Company Number: PHHY2010GB90661

PATIENT
  Sex: Female

DRUGS (3)
  1. LABETALOL [Suspect]
  2. MAGNESIUM SULFATE [Concomitant]
     Dosage: 4 G, UNK
     Route: 042
  3. HYDRALAZINE [Suspect]
     Route: 042

REACTIONS (3)
  - SMALL FOR DATES BABY [None]
  - PREMATURE BABY [None]
  - DRUG EXPOSURE DURING PREGNANCY [None]
